FAERS Safety Report 7285285-9 (Version None)
Quarter: 2011Q1

REPORT INFORMATION
  Report Type: 
  Country: None (occurrence: None)
  Receive Date: 20110210
  Receipt Date: 20110201
  Transmission Date: 20110831
  Serious: Yes (Hospitalization)
  Sender: FDA-Public Use
  Company Number: US-SANOFI-AVENTIS-2011SA006774

PATIENT
  Age: 86 Year
  Sex: Female

DRUGS (10)
  1. PINDOLOL [Concomitant]
  2. ZOCOR [Concomitant]
  3. DABIGATRAN ETEXILATE [Concomitant]
  4. LISINOPRIL [Concomitant]
  5. PREVACID [Concomitant]
  6. MULTAQ [Suspect]
     Route: 048
     Dates: start: 20100201, end: 20110124
  7. MULTAQ [Suspect]
     Route: 048
     Dates: start: 20110125
  8. MULTAQ [Suspect]
     Indication: ATRIAL FIBRILLATION
     Route: 048
     Dates: start: 20100201, end: 20100201
  9. LEVAQUIN [Suspect]
     Indication: BRONCHITIS
     Route: 065
     Dates: start: 20101201
  10. ALDOMET [Concomitant]

REACTIONS (11)
  - ATRIAL FIBRILLATION [None]
  - OFF LABEL USE [None]
  - ABDOMINAL PAIN UPPER [None]
  - DYSPNOEA [None]
  - DRUG INTERACTION [None]
  - UNDERDOSE [None]
  - HYPONATRAEMIA [None]
  - TREMOR [None]
  - DIARRHOEA [None]
  - NAUSEA [None]
  - CHEST DISCOMFORT [None]
